FAERS Safety Report 13359607 (Version 1)
Quarter: 2017Q1

REPORT INFORMATION
  Report Type: Spontaneous
  Country: US (occurrence: US)
  Receive Date: 20170322
  Receipt Date: 20170322
  Transmission Date: 20170429
  Serious: Yes (Hospitalization)
  Sender: FDA-Public Use
  Company Number: US-JNJFOC-20170322474

PATIENT
  Age: 14 Year
  Sex: Female

DRUGS (3)
  1. RISPERIDONE. [Suspect]
     Active Substance: RISPERIDONE
     Indication: PSYCHOTIC DISORDER
     Route: 048
  2. VALPROATE [Suspect]
     Active Substance: VALPROIC ACID
     Indication: AFFECT LABILITY
     Route: 048
  3. ARIPIPRAZOLE. [Suspect]
     Active Substance: ARIPIPRAZOLE
     Indication: PSYCHOTIC DISORDER
     Route: 048

REACTIONS (7)
  - Poor personal hygiene [Unknown]
  - Aggression [Unknown]
  - Impaired self-care [Unknown]
  - Delusion [Unknown]
  - Hospitalisation [Unknown]
  - Abnormal behaviour [Unknown]
  - Treatment noncompliance [Unknown]
